FAERS Safety Report 9552122 (Version 1)
Quarter: 2013Q3

REPORT INFORMATION
  Report Type: Spontaneous
  Country: US (occurrence: None)
  Receive Date: 20130724
  Receipt Date: 20130724
  Transmission Date: 20140515
  Serious: Yes (Other)
  Sender: FDA-Public Use
  Company Number: PHEH2013US004819

PATIENT
  Age: 76 Year
  Sex: Female

DRUGS (2)
  1. DIOVAN HCT [Suspect]
     Indication: HYPERTENSION
     Dosage: 1 DF (160/25MG)
  2. POTASSIUM [Concomitant]

REACTIONS (5)
  - Pharyngeal oedema [None]
  - Nasopharyngitis [None]
  - Wrong technique in drug usage process [None]
  - Choking [None]
  - Dyspnoea [None]
